FAERS Safety Report 6495817-6 (Version None)
Quarter: 2009Q4

REPORT INFORMATION
  Report Type: 
  Country: None (occurrence: None)
  Receive Date: 20091214
  Receipt Date: 20090817
  Transmission Date: 20100525
  Serious: No
  Sender: FDA-Public Use
  Company Number: US-BRISTOL-MYERS SQUIBB COMPANY-14743736

PATIENT
  Age: 53 Year
  Sex: Female
  Weight: 54 kg

DRUGS (4)
  1. ABILIFY [Suspect]
     Indication: DEPRESSION
  2. TRAZODONE HCL [Suspect]
  3. PROZAC [Concomitant]
  4. EFFEXOR [Concomitant]

REACTIONS (2)
  - DYSKINESIA [None]
  - TREMOR [None]
